FAERS Safety Report 7670713-7 (Version None)
Quarter: 2011Q3

REPORT INFORMATION
  Report Type: 
  Country: None (occurrence: None)
  Receive Date: 20110809
  Receipt Date: 20110801
  Transmission Date: 20111222
  Serious: No
  Sender: FDA-Public Use
  Company Number: US-BIOGENIDEC-2011BI029531

PATIENT
  Sex: Female

DRUGS (1)
  1. TYSABRI [Suspect]
     Indication: MULTIPLE SCLEROSIS
     Route: 042
     Dates: start: 20090223

REACTIONS (7)
  - FALL [None]
  - PAIN [None]
  - CARPAL TUNNEL SYNDROME [None]
  - MENISCUS LESION [None]
  - OPTIC NEURITIS [None]
  - LOSS OF CONTROL OF LEGS [None]
  - HEAD INJURY [None]
